FAERS Safety Report 14913305 (Version 2)
Quarter: 2018Q2

REPORT INFORMATION
  Report Type: Report from Study
  Country: US (occurrence: US)
  Receive Date: 20180518
  Receipt Date: 20180604
  Transmission Date: 20180711
  Serious: Yes (Life-Threatening, Other)
  Sender: FDA-Public Use
  Company Number: US-CIPLA (EU) LIMITED-2018US17984

PATIENT

DRUGS (3)
  1. IRINOTECAN [Suspect]
     Active Substance: IRINOTECAN
     Indication: NEUROBLASTOMA
     Dosage: 50 MG/M2, PER DOSE, ON DAYS 1-5 OF 21-DAY CYCLES
     Route: 042
  2. TEMOZOLOMIDE. [Suspect]
     Active Substance: TEMOZOLOMIDE
     Indication: NEUROBLASTOMA
     Dosage: 100 MG/M2, PER DOSE ON DAYS 1-5 OF 21-DAY CYCLES
     Route: 048
  3. DINUTUXIMAB [Suspect]
     Active Substance: DINUTUXIMAB
     Indication: NEUROBLASTOMA
     Dosage: 25 MG/M2 PER DAY
     Route: 042

REACTIONS (2)
  - Toxicity to various agents [Unknown]
  - Hypoxia [Unknown]
